FAERS Safety Report 6371555-5 (Version None)
Quarter: 2009Q3

REPORT INFORMATION
  Report Type: 
  Country: None (occurrence: None)
  Receive Date: 20090923
  Receipt Date: 20071008
  Transmission Date: 20100115
  Serious: Yes (Other)
  Sender: FDA-Public Use
  Company Number: US-ASTRAZENECA-2007UW16522

PATIENT
  Age: 23931 Day
  Sex: Female
  Weight: 80.7 kg

DRUGS (7)
  1. SEROQUEL [Suspect]
     Indication: NERVOUSNESS
     Dosage: 100-400 MG
     Route: 048
     Dates: start: 20010116
  2. SEROQUEL [Suspect]
     Route: 048
     Dates: start: 20030131, end: 20040215
  3. THORAZINE [Concomitant]
     Dosage: 100-300 MG
     Route: 048
     Dates: start: 19920414
  4. PRINIVIL [Concomitant]
     Dates: start: 20010116
  5. COGENTIN [Concomitant]
     Dosage: 1-2 MG
     Route: 048
     Dates: start: 19920414
  6. GLUCOTROL XL [Concomitant]
     Dates: start: 20010116
  7. GLUCOPHAGE [Concomitant]
     Dates: start: 20010116

REACTIONS (4)
  - DIABETES MELLITUS [None]
  - DIABETES MELLITUS INADEQUATE CONTROL [None]
  - PANCREATITIS [None]
  - TARDIVE DYSKINESIA [None]
